FAERS Safety Report 7579564-5 (Version None)
Quarter: 2011Q2

REPORT INFORMATION
  Report Type: 
  Country: None (occurrence: None)
  Receive Date: 20110622
  Receipt Date: 20110607
  Transmission Date: 20111010
  Serious: Yes (Hospitalization)
  Sender: FDA-Public Use
  Company Number: 2011MA006896

PATIENT
  Age: 59 Year
  Sex: Female

DRUGS (5)
  1. LISINOPRIL [Concomitant]
  2. ATENOLOL [Concomitant]
  3. CIMETIDINE [Concomitant]
  4. METFORMIN HCL [Suspect]
     Indication: TYPE 2 DIABETES MELLITUS
  5. FENOFIBRATE [Concomitant]

REACTIONS (7)
  - LACTIC ACIDOSIS [None]
  - RENAL FAILURE ACUTE [None]
  - PANCREATITIS ACUTE [None]
  - HAEMOGLOBIN DECREASED [None]
  - DIALYSIS [None]
  - BLOOD POTASSIUM INCREASED [None]
  - BLOOD PRESSURE DIASTOLIC DECREASED [None]
